FAERS Safety Report 7646447-1 (Version None)
Quarter: 2011Q3

REPORT INFORMATION
  Report Type: 
  Country: None (occurrence: None)
  Receive Date: 20110801
  Receipt Date: 20110721
  Transmission Date: 20111222
  Serious: Yes (Other)
  Sender: FDA-Public Use
  Company Number: US-BAYER-2010-007022

PATIENT
  Age: 25 Year
  Sex: Female

DRUGS (4)
  1. PREVACID [Concomitant]
  2. CARAFATE [Concomitant]
  3. DIGESTIVES, INCL ENZYMES [Concomitant]
  4. YASMIN [Suspect]
     Indication: PRODUCT USED FOR UNKNOWN INDICATION
     Dosage: UNK
     Dates: start: 20070524, end: 20080108

REACTIONS (2)
  - PAIN [None]
  - CHOLECYSTITIS ACUTE [None]
